FAERS Safety Report 5840145-2 (Version None)
Quarter: 2008Q3

REPORT INFORMATION
  Report Type: 
  Country: None (occurrence: None)
  Receive Date: 20080807
  Receipt Date: 20080807
  Transmission Date: 20090109
  Serious: Yes (Other)
  Sender: FDA-Public Use
  Company Number: None

PATIENT
  Sex: Male

DRUGS (2)
  1. OXAPROZIN [Suspect]
     Indication: ARTHRITIS
     Dosage: 600MG BID PO
     Route: 048
     Dates: start: 20080401
  2. GEMFIBROZIL [Concomitant]

REACTIONS (3)
  - PHOTOSENSITIVITY REACTION [None]
  - SUNBURN [None]
  - TOXIC EPIDERMAL NECROLYSIS [None]
